FAERS Safety Report 7606272-4 (Version None)
Quarter: 2011Q3

REPORT INFORMATION
  Report Type: 
  Country: None (occurrence: None)
  Receive Date: 20110705
  Receipt Date: 20110620
  Transmission Date: 20111222
  Serious: Yes (Life-Threatening, Hospitalization, Other)
  Sender: FDA-Public Use
  Company Number: 2011MA007792

PATIENT
  Age: 40 Year
  Sex: Female

DRUGS (2)
  1. ZOLPIDEM TARTRATE EXTENDED-RELEASE TABLETS, 6.25MG (ASALLC) [Suspect]
     Indication: PRODUCT USED FOR UNKNOWN INDICATION
     Dosage: 10 MG;
  2. PRENATAL VITAMS [Concomitant]

REACTIONS (10)
  - PUPIL FIXED [None]
  - OVERDOSE [None]
  - DEPRESSION [None]
  - CORNEAL REFLEX DECREASED [None]
  - SCAR [None]
  - RESPIRATORY ARREST [None]
  - AREFLEXIA [None]
  - BRAIN STEM SYNDROME [None]
  - COMA [None]
  - ELECTROENCEPHALOGRAM ABNORMAL [None]
